FAERS Safety Report 5755016-X (Version None)
Quarter: 2008Q2

REPORT INFORMATION
  Report Type: 
  Country: None (occurrence: None)
  Receive Date: 20080528
  Receipt Date: 20080528
  Transmission Date: 20081010
  Serious: No
  Sender: FDA-Public Use
  Company Number: None

PATIENT
  Age: 78 Year
  Sex: Male
  Weight: 125.2 kg

DRUGS (2)
  1. TRIMETHOPRIM-SULFAMETHOXAZOLE [Suspect]
     Indication: CELLULITIS
     Dosage: 1 TAB BID PO
     Route: 048
     Dates: start: 20080418, end: 20080418
  2. RIFAMPIN [Suspect]
     Indication: CELLULITIS
     Dosage: 300 MG BID PO
     Route: 048
     Dates: start: 20080418, end: 20080418

REACTIONS (2)
  - ABDOMINAL PAIN UPPER [None]
  - NAUSEA [None]
